FAERS Safety Report 8585741-7 (Version None)
Quarter: 2012Q3

REPORT INFORMATION
  Report Type: 
  Country: None (occurrence: None)
  Receive Date: 20120810
  Receipt Date: 20120803
  Transmission Date: 20120928
  Serious: Yes (Hospitalization)
  Sender: FDA-Public Use
  Company Number: IT-UCBSA-054747

PATIENT
  Age: 85 Year
  Sex: Male

DRUGS (9)
  1. ESOPRAL [Concomitant]
     Dosage: 40 MG POWDER FOR INJECTABLE SOLUTION / FOR INFUSION, 1 VIAL
     Dates: start: 20120327
  2. DEXAMETHASONE SODIUM PHOSPHATE [Concomitant]
     Dosage: 4 MG/ML INJECTABLE SOLUTION, 3 AMPOULES 1 ML
  3. ACETAMINOPHEN [Concomitant]
     Dates: start: 20120327
  4. CEFTRIAXONE SODIUM [Suspect]
     Indication: PNEUMONITIS
     Dosage: 4 G
     Dates: start: 20120327, end: 20120328
  5. GLUCOSE [Concomitant]
     Dosage: 5% SOLUTION
     Dates: start: 20120324
  6. FLECADOL [Concomitant]
     Dates: start: 20120327, end: 20120328
  7. ROCEPHIN [Concomitant]
     Dates: start: 20120327
  8. KEPPRA [Suspect]
     Indication: EPILEPSY
     Dosage: 2000 MG
     Route: 042
     Dates: start: 20120326, end: 20120328
  9. LASIX [Concomitant]
     Dates: start: 20120327

REACTIONS (1)
  - RHABDOMYOLYSIS [None]
